FAERS Safety Report 11910861 (Version 3)
Quarter: 2016Q1

REPORT INFORMATION
  Report Type: Spontaneous
  Country: US (occurrence: US)
  Receive Date: 20160112
  Receipt Date: 20160310
  Transmission Date: 20160526
  Serious: Yes (Hospitalization)
  Sender: FDA-Public Use
  Company Number: US-PFIZER INC-2015183720

PATIENT
  Age: 67 Year
  Sex: Female
  Weight: 82 kg

DRUGS (33)
  1. FERROUS SULFATE [Concomitant]
     Active Substance: FERROUS SULFATE\FERROUS SULFATE, DRIED
     Indication: IRON DEFICIENCY
     Dosage: 325 MG, UNK
     Route: 048
     Dates: start: 20140813
  2. SERTRALINE HCL [Concomitant]
     Active Substance: SERTRALINE HYDROCHLORIDE
     Dosage: 100 MG, DAILY
     Route: 048
     Dates: start: 20130111
  3. LYRICA [Suspect]
     Active Substance: PREGABALIN
     Indication: NEURALGIA
  4. MUCINEX [Concomitant]
     Active Substance: GUAIFENESIN
     Dosage: 1200 MG, 2X/DAY (12 HOUR TK 1T PO Q 12)
     Route: 048
     Dates: start: 20130111
  5. PANTOPRAZOLE SODIUM. [Concomitant]
     Active Substance: PANTOPRAZOLE SODIUM
     Dosage: 40 MG, UNK
     Route: 048
     Dates: start: 20140207
  6. SULFAMETOXAZOL + TRIMETOPRIMA [Concomitant]
     Dosage: 1 DF, 2X/DAY [SULFAMETHOXAZOLE 800MG]/[ TRIMETHOPRIM 160MG]
     Route: 048
     Dates: start: 20150407
  7. SPIRIVA [Concomitant]
     Active Substance: TIOTROPIUM BROMIDE MONOHYDRATE
     Indication: CHRONIC OBSTRUCTIVE PULMONARY DISEASE
     Dosage: UNK, ONCE AT MORNING
  8. FERROUS SULFATE [Concomitant]
     Active Substance: FERROUS SULFATE\FERROUS SULFATE, DRIED
     Dosage: 325 MG, 1X/DAY
  9. HYDROCORTISONE. [Concomitant]
     Active Substance: HYDROCORTISONE
     Dosage: 5 MG, DAILY
     Route: 048
     Dates: start: 20130208
  10. NYSTATIN. [Concomitant]
     Active Substance: NYSTATIN
     Dosage: 100000 IU/ML, UNK
     Route: 048
     Dates: start: 20140504
  11. POTASSIUM CHLORIDE. [Concomitant]
     Active Substance: POTASSIUM CHLORIDE
     Dosage: 20 MEQ, 1X/DAY
  12. ALBUTEROL SULFATE. [Concomitant]
     Active Substance: ALBUTEROL SULFATE
     Dosage: UNK ((2.5 MG/3ML) 0.083%
     Dates: start: 20140203
  13. ONDANSETRON HYDROCHLORIDE. [Concomitant]
     Active Substance: ONDANSETRON HYDROCHLORIDE
     Dosage: 8 MG, UNK
     Route: 048
     Dates: start: 20140610
  14. SULFAMETHOXAZOLE AND TRIMETHOPRIM DOUBLE STRENGTH [Concomitant]
     Active Substance: SULFAMETHOXAZOLE\TRIMETHOPRIM
     Indication: CELLULITIS STAPHYLOCOCCAL
     Dosage: 1 DF, 2X/DAY [SULFAMETHOXAZOLE 800 MG]/[ TRIMETHOPRIM160  MG]
     Route: 048
     Dates: start: 20150205
  15. VOLTAREN [Concomitant]
     Active Substance: DICLOFENAC SODIUM
     Dosage: 2MG FOUR TIMES DAILY AS NEEDED
     Route: 062
     Dates: start: 20141103
  16. BABY ASPIRIN [Concomitant]
     Active Substance: ASPIRIN
     Indication: BLOOD DISORDER
     Dosage: UNK EVERY MORNING
  17. FLUCONAZOLE. [Concomitant]
     Active Substance: FLUCONAZOLE
     Dosage: 100 MG, UNK (2 TABLETS ON DAY 1 THEN TAKE 1 TABLET A DAY FOR 4 DAYS)
     Route: 048
     Dates: start: 20150130
  18. PILOCARPINE. [Concomitant]
     Active Substance: PILOCARPINE
     Indication: DRY MOUTH
     Dosage: 5 MG, 3X/DAY
  19. A-HYDROCORT [Concomitant]
     Active Substance: HYDROCORTISONE SODIUM SUCCINATE
     Indication: ADRENAL INSUFFICIENCY
     Dosage: 5 MG IN MORNING AND 2.5 MG AT NIGHT
  20. ASPIRIN. [Concomitant]
     Active Substance: ASPIRIN
     Dosage: 81 MG, DAILY
     Route: 048
  21. DIFLUCAN [Concomitant]
     Active Substance: FLUCONAZOLE
     Dosage: 100 MG, UNK (TAKE 2 TABLETS ON DAY 1 THEN TAKE 1 TABLET A DAY FOR 4 DAYS)
     Route: 048
     Dates: start: 20141112
  22. METOPROLOL TARTRATE. [Concomitant]
     Active Substance: METOPROLOL TARTRATE
     Dosage: 25 MG, 2X/DAY
     Route: 048
     Dates: start: 20130111
  23. SPIRIVA [Concomitant]
     Active Substance: TIOTROPIUM BROMIDE MONOHYDRATE
     Dosage: 18 UG, 1X/DAY
  24. LYRICA [Suspect]
     Active Substance: PREGABALIN
     Indication: SPINAL COLUMN STENOSIS
     Dosage: 150 MG, 2X/DAY
     Route: 048
     Dates: start: 20140602
  25. LYRICA [Suspect]
     Active Substance: PREGABALIN
     Indication: FIBROMYALGIA
     Dosage: 150 MG, 1X/DAY
     Dates: start: 20160121, end: 2016
  26. BUMEX [Concomitant]
     Active Substance: BUMETANIDE
     Dosage: 2 MG, DAILY
  27. IPRATROPIUM BROMIDE. [Concomitant]
     Active Substance: IPRATROPIUM BROMIDE
     Dosage: 0.02 %
     Dates: start: 20140203
  28. TRAZODONE HYDROCHLORIDE. [Concomitant]
     Active Substance: TRAZODONE HYDROCHLORIDE
     Dosage: 100 MG, DAILY
     Route: 048
     Dates: start: 20140316
  29. KLOR-CON [Concomitant]
     Active Substance: POTASSIUM CHLORIDE
     Dosage: UNK
     Route: 048
     Dates: start: 20140126
  30. POLYETHYLENE GLYCOL [Concomitant]
     Active Substance: POLYETHYLENE GLYCOLS
     Dosage: 3350
     Route: 048
     Dates: start: 20140307
  31. SYMBICORT [Concomitant]
     Active Substance: BUDESONIDE\FORMOTEROL FUMARATE DIHYDRATE
     Indication: CHRONIC OBSTRUCTIVE PULMONARY DISEASE
     Dosage: 1 DF, 2X/DAY [BUDESONIDE 160 MCG]/[ FORMOTEROL FUMARATE4.5 MCG]
     Route: 048
     Dates: start: 20130111
  32. OXYBUTYNIN [Concomitant]
     Active Substance: OXYBUTYNIN
     Indication: AUTOMATIC BLADDER
     Dosage: 15 MG, UNK
  33. CHANTIX [Concomitant]
     Active Substance: VARENICLINE TARTRATE
     Indication: SMOKING CESSATION THERAPY
     Dosage: UNK

REACTIONS (4)
  - Bronchitis [Recovered/Resolved]
  - Drug ineffective [Unknown]
  - Pneumonia staphylococcal [Not Recovered/Not Resolved]
  - Pneumonia [Recovered/Resolved]

NARRATIVE: CASE EVENT DATE: 20160128
